FAERS Safety Report 8373729-0 (Version None)
Quarter: 2012Q2

REPORT INFORMATION
  Report Type: 
  Country: None (occurrence: None)
  Receive Date: 20120521
  Receipt Date: 20120510
  Transmission Date: 20120825
  Serious: Yes (Other)
  Sender: FDA-Public Use
  Company Number: CA-ROCHE-1068288

PATIENT
  Sex: Male
  Weight: 79.45 kg

DRUGS (2)
  1. AVASTIN [Suspect]
     Indication: GLIOBLASTOMA
     Route: 042
     Dates: start: 20111129
  2. CRESTOR [Concomitant]

REACTIONS (2)
  - EPISTAXIS [None]
  - NEOPLASM [None]
